FAERS Safety Report 12468833 (Version 1)
Quarter: 2016Q2

REPORT INFORMATION
  Report Type: Spontaneous
  Country: FR (occurrence: FR)
  Receive Date: 20160615
  Receipt Date: 20160615
  Transmission Date: 20160815
  Serious: Yes (Hospitalization, Other)
  Sender: FDA-Public Use
  Company Number: FR-WATSON-2016-12132

PATIENT
  Age: 48 Year
  Sex: Female

DRUGS (7)
  1. TACROLIMUS (UNKNOWN) [Interacting]
     Active Substance: TACROLIMUS
     Dosage: 2 MG, DAILY
     Route: 065
     Dates: start: 201505
  2. POSACONAZOLE [Interacting]
     Active Substance: POSACONAZOLE
     Indication: BRONCHOPULMONARY ASPERGILLOSIS
     Dosage: 400 MG, BID
     Route: 065
     Dates: start: 201505
  3. TACROLIMUS (UNKNOWN) [Suspect]
     Active Substance: TACROLIMUS
     Indication: IMMUNOSUPPRESSION
     Dosage: 1.5 MG, DAILY
     Route: 065
  4. MYCOPHENOLATE MOFETIL. [Concomitant]
     Active Substance: MYCOPHENOLATE MOFETIL
     Indication: IMMUNOSUPPRESSION
     Dosage: 750 MG, DAILY
     Route: 065
  5. WARFARIN (UNKNOWN) [Interacting]
     Active Substance: WARFARIN
     Indication: DEEP VEIN THROMBOSIS
     Dosage: 2 MG, QHS
     Route: 065
     Dates: start: 2013
  6. PREDNISOLONE. [Concomitant]
     Active Substance: PREDNISOLONE
     Indication: IMMUNOSUPPRESSION
     Dosage: 15 MG, DAILY
     Route: 065
  7. TACROLIMUS (UNKNOWN) [Interacting]
     Active Substance: TACROLIMUS
     Dosage: 4 MG, DAILY
     Route: 065

REACTIONS (5)
  - Genital haemorrhage [Unknown]
  - Drug interaction [Unknown]
  - Overdose [Unknown]
  - Acute kidney injury [Unknown]
  - Gastrointestinal haemorrhage [Unknown]
